FAERS Safety Report 7124168-1 (Version None)
Quarter: 2010Q4

REPORT INFORMATION
  Report Type: 
  Country: None (occurrence: None)
  Receive Date: 20101126
  Receipt Date: 20101116
  Transmission Date: 20110411
  Serious: Yes (Other)
  Sender: FDA-Public Use
  Company Number: PHHY2009CA20258

PATIENT
  Sex: Male

DRUGS (3)
  1. SANDOSTATIN LAR [Suspect]
     Indication: ACROMEGALY
     Dosage: 20 MG, QMO
     Route: 030
     Dates: start: 20081218
  2. SANDOSTATIN LAR [Suspect]
     Dosage: 30 MG, UNK
  3. SANDOSTATIN LAR [Suspect]
     Dosage: 40 MG, QMO
     Route: 030

REACTIONS (7)
  - BLOOD GLUCOSE ABNORMAL [None]
  - DIARRHOEA [None]
  - FATIGUE [None]
  - FEELING ABNORMAL [None]
  - IMPLANTABLE DEFIBRILLATOR INSERTION [None]
  - LETHARGY [None]
  - PITUITARY TUMOUR REMOVAL [None]
